FAERS Safety Report 25107058 (Version 2)
Quarter: 2025Q2

REPORT INFORMATION
  Report Type: Spontaneous
  Country: CA (occurrence: CA)
  Receive Date: 20250321
  Receipt Date: 20250630
  Transmission Date: 20250716
  Serious: Yes (Hospitalization, Other)
  Sender: PFIZER
  Company Number: CA-PFIZER INC-202500057644

PATIENT
  Age: 87 Year
  Sex: Male

DRUGS (1)
  1. VYNDAQEL [Suspect]
     Active Substance: TAFAMIDIS MEGLUMINE
     Indication: Cardiac amyloidosis
     Dosage: 80 MG, 1X/DAY
     Route: 048
     Dates: start: 20230527

REACTIONS (12)
  - Cardiac failure chronic [Unknown]
  - Bladder transitional cell carcinoma [Unknown]
  - Syncope [Recovering/Resolving]
  - Disease recurrence [Recovering/Resolving]
  - Haemolysis [Unknown]
  - Acute kidney injury [Recovering/Resolving]
  - Atrioventricular block [Unknown]
  - Bradycardia [Unknown]
  - Skin laceration [Recovering/Resolving]
  - Anaemia [Unknown]
  - Fall [Recovering/Resolving]
  - Contusion [Recovering/Resolving]

NARRATIVE: CASE EVENT DATE: 20240101
